FAERS Safety Report 22589395 (Version 2)
Quarter: 2023Q2

REPORT INFORMATION
  Report Type: Spontaneous
  Country: SB (occurrence: SB)
  Receive Date: 20230612
  Receipt Date: 20230616
  Transmission Date: 20230722
  Serious: Yes (Hospitalization, Other)
  Sender: FDA-Public Use
  Company Number: SB-PFIZER INC-PV202300101987

PATIENT
  Age: 41 Year
  Sex: Male

DRUGS (1)
  1. SUTENT [Suspect]
     Active Substance: SUNITINIB MALATE
     Indication: Gastrointestinal stromal tumour
     Dosage: 50 MG

REACTIONS (4)
  - Intestinal obstruction [Unknown]
  - Tumour haemorrhage [Unknown]
  - Anaemia [Unknown]
  - Neoplasm progression [Unknown]
